FAERS Safety Report 24386614 (Version 1)
Quarter: 2024Q4

REPORT INFORMATION
  Report Type: Spontaneous
  Country: US (occurrence: US)
  Receive Date: 20241002
  Receipt Date: 20241002
  Transmission Date: 20250115
  Serious: Yes (Hospitalization, Other)
  Sender: NEXUS PHARMACEUTICALS
  Company Number: US-Nexus Pharma-000316

PATIENT
  Age: 68 Year
  Sex: Male

DRUGS (3)
  1. ARSENIC TRIOXIDE [Suspect]
     Active Substance: ARSENIC TRIOXIDE
     Indication: Acute promyelocytic leukaemia
     Dosage: 0.15 MG/KG/DAY IV
     Route: 042
  2. TRETINOIN [Concomitant]
     Active Substance: TRETINOIN
     Indication: Acute promyelocytic leukaemia
     Dosage: 45 MG/PER METER SQUARE OF BODY SURFACE AREA/DAY
     Route: 042
  3. PREDNISONE [Concomitant]
     Active Substance: PREDNISONE
     Indication: Differentiation syndrome

REACTIONS (6)
  - Hallucination, visual [Recovered/Resolved]
  - Weight decreased [Unknown]
  - Vision blurred [Recovered/Resolved]
  - Vitreous floaters [Recovered/Resolved]
  - Diabetic neuropathy [Recovering/Resolving]
  - Condition aggravated [Recovering/Resolving]
